FAERS Safety Report 5321774-1 (Version None)
Quarter: 2007Q2

REPORT INFORMATION
  Report Type: 
  Country: None (occurrence: None)
  Receive Date: 20070510
  Receipt Date: 20070430
  Transmission Date: 20071010
  Serious: Yes (Life-Threatening, Hospitalization, Other)
  Sender: FDA-Public Use
  Company Number: GB-PFIZER INC-2007034083

PATIENT
  Age: 38 Year
  Sex: Female
  Weight: 62 kg

DRUGS (1)
  1. ELETRIPTAN [Suspect]
     Indication: MIGRAINE
     Route: 048

REACTIONS (3)
  - CORONARY ARTERY DISSECTION [None]
  - MYOCARDIAL INFARCTION [None]
  - PERICARDITIS [None]
